FAERS Safety Report 19985338 (Version 1)
Quarter: 2021Q4

REPORT INFORMATION
  Report Type: Spontaneous
  Country: CN (occurrence: CN)
  Receive Date: 20211022
  Receipt Date: 20211022
  Transmission Date: 20220303
  Serious: Yes (Other)
  Sender: FDA-Public Use
  Company Number: CN-PFIZER INC-202101375734

PATIENT
  Age: 36 Year
  Sex: Male
  Weight: 78 kg

DRUGS (5)
  1. METHOTREXATE [Suspect]
     Active Substance: METHOTREXATE
     Indication: Diffuse large B-cell lymphoma
     Dosage: 7 G, 1X/DAY
     Route: 041
     Dates: start: 20210922, end: 20210922
  2. BICYCLOL [Concomitant]
     Active Substance: BICYCLOL
     Indication: Therapeutic procedure
     Dosage: 50 MG, 3X/DAY
     Route: 048
     Dates: start: 20210918, end: 20210927
  3. CYSTEINE\GLYCINE\GLYCYRRHIZIN [Concomitant]
     Active Substance: CYSTEINE\GLYCINE\GLYCYRRHIZIN
     Indication: Therapeutic procedure
     Dosage: 60 ML, 1X/DAY
     Route: 041
     Dates: start: 20210918, end: 20210927
  4. LEVOCARNITINE [Concomitant]
     Active Substance: LEVOCARNITINE
     Indication: Therapeutic procedure
     Dosage: 2 G, 1X/DAY
     Route: 041
     Dates: start: 20210922, end: 20210926
  5. PANTOPRAZOLE SODIUM [Concomitant]
     Active Substance: PANTOPRAZOLE SODIUM
     Indication: Therapeutic procedure
     Dosage: 40 MG, 1X/DAY
     Route: 041
     Dates: start: 20210922, end: 20210927

REACTIONS (2)
  - Blood creatinine increased [Recovering/Resolving]
  - Drug level increased [Recovering/Resolving]

NARRATIVE: CASE EVENT DATE: 20210925
